FAERS Safety Report 5872201-7 (Version None)
Quarter: 2008Q3

REPORT INFORMATION
  Report Type: 
  Country: None (occurrence: None)
  Receive Date: 20080905
  Receipt Date: 20080812
  Transmission Date: 20090109
  Serious: Yes (Disabling)
  Sender: FDA-Public Use
  Company Number: AU-BOEHRINGER INGELHEIM GMBH, GERMANY-2008-BP-13699YA

PATIENT
  Sex: Male

DRUGS (10)
  1. TAMSULOSIN HCL [Suspect]
     Route: 048
     Dates: start: 20080620
  2. ZOCOR [Concomitant]
     Indication: HYPERCHOLESTEROLAEMIA
     Route: 048
     Dates: start: 20070801
  3. PRILACE [Concomitant]
     Indication: HYPERTENSION
     Route: 048
     Dates: start: 20080627
  4. NITRO-DUR [Concomitant]
     Indication: ANGINA PECTORIS
     Route: 062
     Dates: start: 20080718
  5. DIGESIC (DEXTROPROPOXYPHENE HYDROCHLORIDE) [Concomitant]
     Indication: PAIN
     Route: 048
  6. NASONEX [Concomitant]
     Route: 045
     Dates: start: 20080725
  7. XALATAN [Concomitant]
     Indication: GLAUCOMA
     Route: 031
     Dates: start: 20070901
  8. MINAX [Concomitant]
     Indication: ANGINA PECTORIS
     Route: 048
     Dates: start: 20071001
  9. MINAX [Concomitant]
     Indication: HYPERTENSION
  10. NOVASONE [Concomitant]
     Dates: start: 20070801

REACTIONS (1)
  - TINNITUS [None]
